FAERS Safety Report 15957546 (Version 1)
Quarter: 2019Q1

REPORT INFORMATION
  Report Type: Spontaneous
  Country: US (occurrence: US)
  Receive Date: 20190213
  Receipt Date: 20190213
  Transmission Date: 20190417
  Serious: Yes (Hospitalization)
  Sender: FDA-Public Use
  Company Number: None

PATIENT
  Age: 47 Year
  Sex: Male
  Weight: 64 kg

DRUGS (17)
  1. GUAIFENISIN [Concomitant]
     Dates: start: 20190211
  2. CLONAZEPAM. [Concomitant]
     Active Substance: CLONAZEPAM
     Dates: start: 20190110
  3. LACTOBACILLUS ACIDOPHILUS [Concomitant]
     Active Substance: LACTOBACILLUS ACIDOPHILUS
     Dates: start: 20190121
  4. AMANTADINE. [Concomitant]
     Active Substance: AMANTADINE HYDROCHLORIDE
     Dates: start: 20190119
  5. FERROUS SULFATE. [Concomitant]
     Active Substance: FERROUS SULFATE
     Dates: start: 20190111
  6. PANTOPRAZOLE [Concomitant]
     Active Substance: PANTOPRAZOLE
     Dates: start: 20190111
  7. THIAMINE. [Concomitant]
     Active Substance: THIAMINE
     Dates: start: 20190111
  8. MULTIVITAMIN [Concomitant]
     Active Substance: VITAMINS
     Dates: start: 20190111
  9. RIVASTIGMINE PATCH [Suspect]
     Active Substance: RIVASTIGMINE
     Route: 062
     Dates: start: 20190211, end: 20190213
  10. FOLIC ACID. [Concomitant]
     Active Substance: FOLIC ACID
     Dates: start: 20190111
  11. HEPARIN [Concomitant]
     Active Substance: HEPARIN SODIUM
     Dates: start: 20190110
  12. TICAGRELOR. [Concomitant]
     Active Substance: TICAGRELOR
     Dates: start: 20190110
  13. DOCUSATE-SENNA [Concomitant]
     Dates: start: 20190121
  14. RISPERIDONE. [Concomitant]
     Active Substance: RISPERIDONE
     Dates: start: 20190129
  15. ASPIRIN. [Concomitant]
     Active Substance: ASPIRIN
     Dates: start: 20190110
  16. CARVEDILOL. [Concomitant]
     Active Substance: CARVEDILOL
     Dates: start: 20190110
  17. VENLAFAXINE [Concomitant]
     Active Substance: VENLAFAXINE HYDROCHLORIDE
     Dates: start: 20190207

REACTIONS (3)
  - Tremor [None]
  - Hyperhidrosis [None]
  - Seizure [None]

NARRATIVE: CASE EVENT DATE: 20190213
